FAERS Safety Report 20580158 (Version 1)
Quarter: 2022Q1

REPORT INFORMATION
  Report Type: Spontaneous
  Country: JP (occurrence: JP)
  Receive Date: 20220310
  Receipt Date: 20220310
  Transmission Date: 20220423
  Serious: Yes (Other)
  Sender: FDA-Public Use
  Company Number: JP-NBI-S202200050BIPI

PATIENT

DRUGS (2)
  1. GILOTRIF [Suspect]
     Active Substance: AFATINIB
     Indication: Non-small cell lung cancer
     Route: 065
  2. GILOTRIF [Suspect]
     Active Substance: AFATINIB
     Route: 065

REACTIONS (1)
  - Colitis [Unknown]
